FAERS Safety Report 7032267-8 (Version None)
Quarter: 2010Q4

REPORT INFORMATION
  Report Type: 
  Country: None (occurrence: None)
  Receive Date: 20101007
  Receipt Date: 20100927
  Transmission Date: 20110411
  Serious: No
  Sender: FDA-Public Use
  Company Number: US-B.I. PHARMACEUTICALS,INC./RIDGEFIELD-2010-BP-10131BP

PATIENT
  Sex: Female

DRUGS (7)
  1. COMBIVENT [Suspect]
     Indication: PULMONARY FIBROSIS
     Dosage: 6 PUF
     Route: 055
     Dates: start: 20100301
  2. COMBIVENT [Suspect]
     Indication: LUNG DISORDER
  3. HYDROCHLOROTHIAZIDE [Concomitant]
     Indication: FLUID RETENTION
     Dosage: 25 MG
     Route: 048
  4. KLOR-CON [Concomitant]
     Indication: MUSCLE SPASMS
     Dosage: 20 MG
     Route: 048
  5. OXYBUTIN [Concomitant]
     Indication: URINARY INCONTINENCE
     Dosage: 10 MG
     Route: 048
  6. PROTONIX [Concomitant]
     Indication: GASTROOESOPHAGEAL REFLUX DISEASE
     Dosage: 40 MG
     Route: 048
  7. CEFLEXIN [Concomitant]
     Indication: URINARY TRACT INFECTION
     Dosage: 500 MG
     Route: 048

REACTIONS (2)
  - COUGH [None]
  - DRUG INEFFECTIVE [None]
